FAERS Safety Report 9372219 (Version 1)
Quarter: 2013Q2

REPORT INFORMATION
  Report Type: Report from Study
  Country: US (occurrence: US)
  Receive Date: 20130627
  Receipt Date: 20130627
  Transmission Date: 20140414
  Serious: Yes (Death)
  Sender: FDA-Public Use
  Company Number: US-MYLANLABS-2012S1017512

PATIENT
  Age: 79 Year
  Sex: Female

DRUGS (2)
  1. CLOZAPINE TABLETS [Suspect]
     Dosage: 50MG BID AND 300MG HS
     Route: 048
     Dates: end: 201208
  2. CLOZAPINE TABLETS [Suspect]
     Route: 048
     Dates: end: 201208

REACTIONS (1)
  - Cardiac death [Fatal]
